FAERS Safety Report 13661712 (Version 1)
Quarter: 2017Q2

REPORT INFORMATION
  Report Type: Spontaneous
  Country: ZA (occurrence: ZA)
  Receive Date: 20170616
  Receipt Date: 20170616
  Transmission Date: 20170830
  Serious: Yes (Hospitalization)
  Sender: FDA-Public Use
  Company Number: ZA-NOVOPROD-549630

PATIENT
  Age: 54 Year
  Sex: Female

DRUGS (1)
  1. NOVOFEM [Suspect]
     Active Substance: ESTRADIOL HEMIHYDRATE\NORETHINDRONE ACETATE
     Indication: HORMONE THERAPY
     Dosage: UNK
     Route: 065
     Dates: start: 20161219

REACTIONS (1)
  - Appendicectomy [Unknown]
